FAERS Safety Report 10031195 (Version 1)
Quarter: 2014Q1

REPORT INFORMATION
  Report Type: Spontaneous
  Country: US (occurrence: US)
  Receive Date: 20140324
  Receipt Date: 20140324
  Transmission Date: 20141002
  Serious: No
  Sender: FDA-Public Use
  Company Number: US-BIOGENIDEC-2014BI022827

PATIENT
  Sex: Female
  Weight: 110 kg

DRUGS (13)
  1. TECFIDERA [Suspect]
     Indication: MULTIPLE SCLEROSIS
  2. AVONEX [Concomitant]
     Indication: MULTIPLE SCLEROSIS
     Route: 030
     Dates: start: 20100429, end: 20131122
  3. ONDANSETRON [Concomitant]
  4. PRANDIN [Concomitant]
  5. BACLOFEN [Concomitant]
     Route: 048
  6. IBUPROFEN [Concomitant]
     Route: 048
  7. JANUVIA [Concomitant]
  8. VITAMIN D3 [Concomitant]
     Route: 048
  9. FISH OIL [Concomitant]
  10. OMEPRAZOLE [Concomitant]
     Route: 048
  11. CITALOPRAM HYDROBROMIDE [Concomitant]
  12. SIMVASTATIN [Concomitant]
     Route: 048
  13. LUNESTA [Concomitant]

REACTIONS (16)
  - Chest pain [Unknown]
  - Ligament rupture [Unknown]
  - Muscle spasms [Unknown]
  - Musculoskeletal pain [Unknown]
  - Fatigue [Unknown]
  - Vitamin D deficiency [Unknown]
  - Eye irritation [Unknown]
  - Muscle strain [Unknown]
  - Arthropod bite [Unknown]
  - Fibrocystic breast disease [Unknown]
  - Gastric ulcer [Unknown]
  - Ankle fracture [Unknown]
  - Osteoarthritis [Unknown]
  - Granuloma [Unknown]
  - Feeling abnormal [Unknown]
  - Nausea [Unknown]
